FAERS Safety Report 18695385 (Version 1)
Quarter: 2021Q1

REPORT INFORMATION
  Report Type: Spontaneous
  Country: US (occurrence: US)
  Receive Date: 20210102
  Receipt Date: 20210102
  Transmission Date: 20210419
  Serious: Yes (Hospitalization)
  Sender: FDA-Public Use
  Company Number: None

PATIENT
  Age: 16 Year
  Sex: Female
  Weight: 62.4 kg

DRUGS (6)
  1. ONCASPAR [Suspect]
     Active Substance: PEGASPARGASE
     Dates: end: 20201208
  2. METHOTREXATE. [Suspect]
     Active Substance: METHOTREXATE
     Dates: end: 20201211
  3. CYTARABINE. [Suspect]
     Active Substance: CYTARABINE
     Dates: end: 20201204
  4. DAUNORUBICIN [Suspect]
     Active Substance: DAUNORUBICIN
     Dates: end: 20201219
  5. VINCRISTINE SULFATE. [Suspect]
     Active Substance: VINCRISTINE SULFATE
     Dates: end: 20201219
  6. PREDNISOLONE. [Suspect]
     Active Substance: PREDNISOLONE
     Dates: end: 20201224

REACTIONS (10)
  - Seizure [None]
  - Pyrexia [None]
  - Facial paralysis [None]
  - Mydriasis [None]
  - Headache [None]
  - Dyspnoea [None]
  - Superior sagittal sinus thrombosis [None]
  - Hypofibrinogenaemia [None]
  - Generalised tonic-clonic seizure [None]
  - Hemiparesis [None]

NARRATIVE: CASE EVENT DATE: 20201225
